FAERS Safety Report 6687916-0 (Version None)
Quarter: 2010Q2

REPORT INFORMATION
  Report Type: 
  Country: None (occurrence: None)
  Receive Date: 20100420
  Receipt Date: 20100408
  Transmission Date: 20101027
  Serious: Yes (Hospitalization, Other)
  Sender: FDA-Public Use
  Company Number: US-JNJFOC-20091203288

PATIENT
  Sex: Female

DRUGS (1)
  1. LEVAQUIN [Suspect]
     Indication: SINUSITIS
     Route: 048

REACTIONS (6)
  - ARTHRALGIA [None]
  - EPICONDYLITIS [None]
  - NAUSEA [None]
  - PRURITUS GENERALISED [None]
  - TENDON PAIN [None]
  - TENDON RUPTURE [None]
